FAERS Safety Report 13437157 (Version 1)
Quarter: 2017Q2

REPORT INFORMATION
  Report Type: Spontaneous
  Country: US (occurrence: US)
  Receive Date: 20170413
  Receipt Date: 20170413
  Transmission Date: 20170830
  Serious: No
  Sender: FDA-Public Use
  Company Number: US-SA-2016SA165117

PATIENT
  Age: 50 Year
  Sex: Female
  Weight: 72.5 kg

DRUGS (1)
  1. ALLEGRA D-12 HOUR [Suspect]
     Active Substance: FEXOFENADINE HYDROCHLORIDE\PSEUDOEPHEDRINE HYDROCHLORIDE
     Indication: MULTIPLE ALLERGIES
     Dosage: 60MG/120MG Q A.M.
     Route: 065
     Dates: start: 20160904, end: 20160906

REACTIONS (5)
  - Chest discomfort [Unknown]
  - Palpitations [Recovered/Resolved]
  - Agitation [Recovered/Resolved]
  - Chest pain [Recovered/Resolved]
  - Feeling jittery [Unknown]

NARRATIVE: CASE EVENT DATE: 20160904
